FAERS Safety Report 9629615 (Version 2)
Quarter: 2013Q4

REPORT INFORMATION
  Report Type: Spontaneous
  Country: IT (occurrence: IT)
  Receive Date: 20131017
  Receipt Date: 20131218
  Transmission Date: 20140711
  Serious: Yes (Other)
  Sender: FDA-Public Use
  Company Number: IT-TEVA-436672ISR

PATIENT
  Age: 41 Year
  Sex: Male

DRUGS (1)
  1. RISPERIDONE [Suspect]
     Indication: SCHIZOPHRENIA
     Dosage: 3 MILLIGRAM DAILY;
     Route: 048
     Dates: start: 20130820, end: 20130919

REACTIONS (5)
  - Anxiety [Recovering/Resolving]
  - Insomnia [Recovering/Resolving]
  - Somatisation disorder [Recovering/Resolving]
  - Anxiety [Recovering/Resolving]
  - Drug ineffective [Recovering/Resolving]
